FAERS Safety Report 17663089 (Version 1)
Quarter: 2020Q2

REPORT INFORMATION
  Report Type: Report from Study
  Country: US (occurrence: US)
  Receive Date: 20200413
  Receipt Date: 20200413
  Transmission Date: 20200713
  Serious: Yes (Hospitalization)
  Sender: FDA-Public Use
  Company Number: NVSC2020US096928

PATIENT
  Age: 79 Year
  Sex: Male

DRUGS (1)
  1. PROMACTA [Suspect]
     Active Substance: ELTROMBOPAG OLAMINE
     Indication: APLASTIC ANAEMIA
     Dosage: 150 MG, QD
     Route: 048

REACTIONS (5)
  - Dehydration [Recovering/Resolving]
  - Visual impairment [Recovered/Resolved]
  - Jaundice [Recovering/Resolving]
  - Renal failure [Recovering/Resolving]
  - Dizziness [Recovering/Resolving]

NARRATIVE: CASE EVENT DATE: 20200406
